FAERS Safety Report 6893335-4 (Version None)
Quarter: 2010Q3

REPORT INFORMATION
  Report Type: 
  Country: None (occurrence: None)
  Receive Date: 20100731
  Receipt Date: 20090813
  Transmission Date: 20110219
  Serious: No
  Sender: FDA-Public Use
  Company Number: US-PFIZER INC-2009227852

PATIENT
  Sex: Male
  Weight: 77.098 kg

DRUGS (1)
  1. LIPITOR [Suspect]
     Indication: BLOOD CHOLESTEROL ABNORMAL
     Dosage: UNK

REACTIONS (3)
  - BODY HEIGHT DECREASED [None]
  - GAIT DISTURBANCE [None]
  - WEIGHT DECREASED [None]
